FAERS Safety Report 9327605 (Version 8)
Quarter: 2013Q4

REPORT INFORMATION
  Report Type: Spontaneous
  Country: US (occurrence: US)
  Receive Date: 20130604
  Receipt Date: 20131108
  Transmission Date: 20140711
  Serious: Yes (Other)
  Sender: FDA-Public Use
  Company Number: US-PFIZER INC-2013165451

PATIENT
  Age: 60 Year
  Sex: Female
  Weight: 76.19 kg

DRUGS (10)
  1. SUTENT [Suspect]
     Indication: PANCREATIC NEUROENDOCRINE TUMOUR
     Dosage: 50 MG, UNK
     Dates: start: 20130514
  2. SUTENT [Suspect]
     Dosage: 37.5 MG, UNK
     Dates: start: 20130612
  3. SUTENT [Suspect]
     Dosage: 25 MG, DAILY
     Dates: start: 20130717
  4. MIRACLE MOUTH WASH [Suspect]
     Dosage: UNK
  5. INSULIN PUMP [Concomitant]
     Dosage: UNK
  6. SIMVASTATIN [Concomitant]
     Dosage: UNK
  7. NEXIUM [Concomitant]
     Indication: GASTROOESOPHAGEAL REFLUX DISEASE
     Dosage: 40 MG, 1X/DAY
  8. SYNTHROID [Concomitant]
     Indication: HYPOTHYROIDISM
     Dosage: 225 UG, 1X/DAY
  9. ENALAPRIL [Concomitant]
     Indication: HYPERTENSION
     Dosage: 25 MG, 1X/DAY
  10. HYDROCHLOROTHIAZIDE [Concomitant]
     Indication: HYPERTENSION
     Dosage: 20 MG, 1X/DAY

REACTIONS (21)
  - Pancytopenia [Unknown]
  - Dysgeusia [Unknown]
  - Hypoglycaemia [Unknown]
  - Blood pressure increased [Not Recovered/Not Resolved]
  - Oral pain [Unknown]
  - Glossodynia [Not Recovered/Not Resolved]
  - Oedema peripheral [Unknown]
  - Nausea [Unknown]
  - Hyperaesthesia [Not Recovered/Not Resolved]
  - Erythema [Not Recovered/Not Resolved]
  - Pain in extremity [Recovered/Resolved]
  - Blister [Recovered/Resolved]
  - Palmar-plantar erythrodysaesthesia syndrome [Recovered/Resolved]
  - Hair colour changes [Not Recovered/Not Resolved]
  - Abdominal discomfort [Unknown]
  - Disease progression [Recovering/Resolving]
  - Pancreatic neuroendocrine tumour [Recovering/Resolving]
  - Diarrhoea [Not Recovered/Not Resolved]
  - Tenderness [Recovered/Resolved]
  - Paraesthesia [Recovered/Resolved]
  - Palmar-plantar erythrodysaesthesia syndrome [Unknown]
